FAERS Safety Report 6454654 (Version 16)
Quarter: 2013Q2

REPORT INFORMATION
  Report Type: Spontaneous
  Country: US (occurrence: US)
  Receive Date: 20071030
  Receipt Date: 20120515
  Transmission Date: 20140414
  Serious: Yes (Other)
  Sender: FDA-Public Use
  Company Number: PHEH2007US13967

PATIENT
  Age: 66 Year
  Sex: Male
  Weight: 94.8 kg

DRUGS (20)
  1. ZOMETA [Suspect]
     Indication: PROSTATE CANCER
     Route: 042
     Dates: start: 2002, end: 200610
  2. ZOMETA [Suspect]
     Indication: METASTASES TO BONE
     Route: 042
     Dates: start: 2002, end: 200610
  3. ATENOLOL [Concomitant]
  4. ASPIRIN [Concomitant]
  5. ZOCOR [Concomitant]
  6. ACTONEL [Concomitant]
  7. LIPITOR [Concomitant]
  8. BENICAR [Concomitant]
  9. NEXIUM [Concomitant]
  10. LUPRON [Concomitant]
  11. CASODEX [Concomitant]
  12. FOLIC ACID [Concomitant]
  13. MOBIC [Concomitant]
  14. VIOXX [Concomitant]
  15. TRETINOIN [Concomitant]
  16. RADIATION THERAPY [Concomitant]
  17. ALTACE [Concomitant]
  18. ADVIL [Concomitant]
  19. ANTINEOPLASTIC AGENTS [Concomitant]
  20. AREDIA (DISODIUM PAMIDRONATE) SOLUTION FOR INJECTION [Suspect]

REACTIONS (52)
  - VASCULAR GRAFT OCCLUSION [Unknown]
  - CATHETERISATION CARDIAC [Unknown]
  - CORONARY ANGIOPLASTY [Unknown]
  - CORONARY ARTERIAL STENT INSERTION [Unknown]
  - SPINAL OSTEOARTHRITIS [Unknown]
  - COLON ADENOMA [Unknown]
  - COLON POLYPECTOMY [Unknown]
  - OSTEONECROSIS OF JAW [Unknown]
  - PHYSICAL DISABILITY [Unknown]
  - BONE DISORDER [Unknown]
  - INJURY [Unknown]
  - PAIN [Unknown]
  - ANXIETY [Unknown]
  - EMOTIONAL DISTRESS [Unknown]
  - DEFORMITY [Unknown]
  - ANHEDONIA [Unknown]
  - GINGIVAL SWELLING [Unknown]
  - BONE DENSITY DECREASED [None]
  - Periodontitis [Unknown]
  - PRIMARY SEQUESTRUM [None]
  - LOOSE TOOTH [Unknown]
  - TOOTH EXTRACTION [Unknown]
  - POST PROCEDURAL FISTULA [Unknown]
  - GINGIVAL RECESSION [Unknown]
  - OSTEOMYELITIS [Unknown]
  - OROPHARYNGEAL BLISTERING [Unknown]
  - ORAL SURGERY [None]
  - OSTEOLYSIS [Unknown]
  - SWELLING [Unknown]
  - ENDODONTIC PROCEDURE [Unknown]
  - DYSPHAGIA [Unknown]
  - PARAESTHESIA [Unknown]
  - TOOTH DISORDER [Unknown]
  - FISTULA [Unknown]
  - DEBRIDEMENT [Unknown]
  - METASTATIC NEOPLASM [Unknown]
  - POLLAKIURIA [Unknown]
  - GASTROOESOPHAGEAL REFLUX DISEASE [Unknown]
  - GAIT DISTURBANCE [Unknown]
  - POLYP [Unknown]
  - TONGUE DISORDER [Unknown]
  - HIATUS HERNIA [Unknown]
  - EROSIVE OESOPHAGITIS [Unknown]
  - MUCOSAL INFLAMMATION [Unknown]
  - DIVERTICULUM [Unknown]
  - HAEMORRHOIDS [Unknown]
  - MIGRAINE [Unknown]
  - DIARRHOEA [Unknown]
  - MUSCULOSKELETAL DISCOMFORT [Unknown]
  - BACK PAIN [Unknown]
  - BONE DEBRIDEMENT [Unknown]
  - SYNOVIAL CYST [Unknown]
